FAERS Safety Report 22370708 (Version 1)
Quarter: 2023Q2

REPORT INFORMATION
  Report Type: Spontaneous
  Country: IN (occurrence: IN)
  Receive Date: 20230526
  Receipt Date: 20230526
  Transmission Date: 20230722
  Serious: Yes (Other)
  Sender: FDA-Public Use
  Company Number: IN-AJANTA-2023AJA00099

PATIENT
  Age: 25 Year
  Sex: Male

DRUGS (2)
  1. VALGANCICLOVIR HYDROCHLORIDE [Suspect]
     Active Substance: VALGANCICLOVIR HYDROCHLORIDE
     Indication: Cytomegalovirus chorioretinitis
     Route: 048
  2. GANCICLOVIR [Suspect]
     Active Substance: GANCICLOVIR
     Indication: Cytomegalovirus chorioretinitis
     Dosage: 2MG/0.1ML
     Route: 035

REACTIONS (2)
  - Cytomegalovirus chorioretinitis [Recovered/Resolved]
  - Congenital dyskeratosis [Recovered/Resolved]
